FAERS Safety Report 8225466 (Version 3)
Quarter: 2013Q1

REPORT INFORMATION
  Report Type: Spontaneous
  Country: US (occurrence: US)
  Receive Date: 20111103
  Receipt Date: 20130124
  Transmission Date: 20140127
  Serious: Yes (Other)
  Sender: FDA-Public Use
  Company Number: US-US-EMD SERONO, INC.-7092201

PATIENT
  Sex: Female
  Weight: 50 kg

DRUGS (4)
  1. REBIF [Suspect]
     Indication: MULTIPLE SCLEROSIS
     Route: 058
     Dates: start: 20000104
  2. REBIF [Suspect]
     Route: 058
  3. TYLENOL (ACETAMINOPHEN) [Concomitant]
     Indication: PREMEDICATION
  4. FAMOTIDINE [Concomitant]
     Indication: GASTRIC DISORDER

REACTIONS (10)
  - Retinal tear [Not Recovered/Not Resolved]
  - Cataract operation [Unknown]
  - Macular hole [Not Recovered/Not Resolved]
  - Frustration [Unknown]
  - Depressed mood [Unknown]
  - Headache [Unknown]
  - Influenza like illness [Unknown]
  - Hypothyroidism [Not Recovered/Not Resolved]
  - Injection site erythema [Not Recovered/Not Resolved]
  - Injection site nodule [Unknown]
